FAERS Safety Report 4515796-8 (Version None)
Quarter: 2004Q4

REPORT INFORMATION
  Report Type: 
  Country: None (occurrence: None)
  Receive Date: 20041001
  Receipt Date: 20040726
  Transmission Date: 20050328
  Serious: Yes (Other)
  Sender: FDA-Public Use
  Company Number: 002206

PATIENT
  Age: 59 Year
  Sex: Female

DRUGS (4)
  1. MEDROXYPROGESTERONE ACETATE [Suspect]
     Dates: start: 19951101, end: 20001031
  2. PREMARIN [Suspect]
     Dates: start: 19951101, end: 20001031
  3. PROVERA [Suspect]
     Dates: start: 20010101, end: 20010201
  4. MEDROXYPROGESTERONE ACETATE [Suspect]

REACTIONS (1)
  - DEEP VEIN THROMBOSIS [None]
